FAERS Safety Report 8661446 (Version 3)
Quarter: 2012Q4

REPORT INFORMATION
  Report Type: 
  Country: JP (occurrence: JP)
  Receive Date: 20120712
  Receipt Date: 20120831
  Transmission Date: 20130627
  Serious: Yes (Death, Hospitalization)
  Sender: FDA-Public Use
  Company Number: PHHY2012JP050931

PATIENT
  Age: 77 Year
  Sex: Male

DRUGS (3)
  1. TEGRETOL [Suspect]
     Indication: EPILEPSY
     Dosage: 200 mg, daily
     Route: 048
     Dates: start: 20120604, end: 20120607
  2. TEGRETOL [Suspect]
     Dosage: 400 mg, daily
     Route: 048
     Dates: start: 20120608, end: 20120611
  3. DEPAKENE [Concomitant]
     Indication: EPILEPSY
     Dosage: 200 mg, UNK
     Route: 048
     Dates: start: 20120611

REACTIONS (5)
  - Subarachnoid haemorrhage [Fatal]
  - Coma [Fatal]
  - Drug effect decreased [Unknown]
  - Epilepsy [Unknown]
  - Convulsion [Unknown]
